FAERS Safety Report 9380131 (Version 3)
Quarter: 2013Q3

REPORT INFORMATION
  Report Type: Spontaneous
  Country: JP (occurrence: JP)
  Receive Date: 20130702
  Receipt Date: 20130724
  Transmission Date: 20140515
  Serious: Yes (Hospitalization)
  Sender: FDA-Public Use
  Company Number: JP-ABBOTT-13X-087-1061475-00

PATIENT
  Age: 70 Year
  Sex: Male
  Weight: 64 kg

DRUGS (6)
  1. LANSAP 800 [Suspect]
     Indication: HELICOBACTER INFECTION
     Dosage: 1 CARD (0.5 CARD)
     Route: 048
     Dates: start: 20130221, end: 20130223
  2. LANSAP 800 [Suspect]
     Indication: HELICOBACTER INFECTION
     Dosage: 1 CARD (0.5 CARD)
     Route: 048
     Dates: start: 20130221, end: 20130223
  3. LANSAP 800 [Suspect]
     Indication: HELICOBACTER INFECTION
     Dosage: 1 CARD (0.5 CARD)
     Route: 048
     Dates: start: 20130221, end: 20130223
  4. CELECOX [Concomitant]
     Indication: SCIATICA
     Route: 048
  5. MUCOSTA [Concomitant]
     Indication: SCIATICA
     Route: 048
  6. PRORENAL [Concomitant]
     Indication: SCIATICA
     Route: 048

REACTIONS (3)
  - Pyrexia [Unknown]
  - Rash [Recovered/Resolved]
  - Generalised erythema [Recovered/Resolved]
